FAERS Safety Report 23322134 (Version 1)
Quarter: 2023Q4

REPORT INFORMATION
  Report Type: Spontaneous
  Country: CN (occurrence: CN)
  Receive Date: 20231220
  Receipt Date: 20231220
  Transmission Date: 20240109
  Serious: Yes (Hospitalization)
  Sender: FDA-Public Use
  Company Number: CN-PFIZER INC-PV202300203578

PATIENT
  Age: 61 Year
  Sex: Female

DRUGS (6)
  1. FLUCONAZOLE [Suspect]
     Active Substance: FLUCONAZOLE
     Indication: Antifungal treatment
     Dosage: 0.4 G, 2X/DAY (Q 12H)
     Route: 041
     Dates: start: 20231108, end: 20231120
  2. FLUCONAZOLE [Suspect]
     Active Substance: FLUCONAZOLE
     Indication: Antibiotic therapy
  3. SODIUM CHLORIDE [Suspect]
     Active Substance: SODIUM CHLORIDE
     Dosage: 0.4 G, 2X/DAY (Q 12H)
     Route: 041
     Dates: start: 20231108
  4. CEFOPERAZONE SODIUM\SULBACTAM SODIUM [Suspect]
     Active Substance: CEFOPERAZONE SODIUM\SULBACTAM SODIUM
     Indication: Antibiotic therapy
     Dosage: 3 G, 2X/DAY (Q 12H)
     Route: 041
     Dates: start: 20231108, end: 20231120
  5. VANCOMYCIN [Suspect]
     Active Substance: VANCOMYCIN
     Indication: Antibiotic therapy
     Dosage: 1 G, 2X/DAY (Q 12H)
     Route: 041
     Dates: start: 20231108, end: 20231117
  6. STERILE WATER [Suspect]
     Active Substance: WATER
     Dosage: 5 ML, 2X/DAY (Q 12H)
     Route: 041
     Dates: start: 20231108

REACTIONS (2)
  - Erythema [Recovering/Resolving]
  - Rash [Recovering/Resolving]

NARRATIVE: CASE EVENT DATE: 20231117
